FAERS Safety Report 7537071-X (Version None)
Quarter: 2011Q2

REPORT INFORMATION
  Report Type: 
  Country: None (occurrence: None)
  Receive Date: 20110609
  Receipt Date: 20110527
  Transmission Date: 20111010
  Serious: Yes (Other)
  Sender: FDA-Public Use
  Company Number: PHHY2011FR45893

PATIENT
  Sex: Female

DRUGS (5)
  1. TAMOXIFEN CITRATE [Suspect]
     Indication: BREAST CANCER
     Dates: start: 20110107, end: 20110318
  2. ZOMETA [Suspect]
     Route: 042
     Dates: start: 20100816, end: 20110318
  3. ZOMETA [Suspect]
     Dates: end: 20110415
  4. AVASTIN [Suspect]
     Indication: BREAST CANCER
     Route: 042
     Dates: start: 20100101, end: 20110415
  5. TAXOL [Suspect]
     Indication: BREAST CANCER
     Dates: start: 20100101, end: 20101222

REACTIONS (1)
  - OSTEONECROSIS OF JAW [None]
